FAERS Safety Report 10067382 (Version 1)
Quarter: 2014Q2

REPORT INFORMATION
  Report Type: Spontaneous
  Country: GB (occurrence: GB)
  Receive Date: 20140409
  Receipt Date: 20140409
  Transmission Date: 20141212
  Serious: Yes (Hospitalization)
  Sender: FDA-Public Use
  Company Number: GB-AMGEN-GBRSP2014023905

PATIENT
  Age: 55 Year
  Sex: Male
  Weight: 66 kg

DRUGS (9)
  1. XGEVA [Suspect]
     Indication: BONE CANCER METASTATIC
     Dosage: 120 MG, UNK
     Route: 058
     Dates: start: 20140304
  2. ANUSOL                             /00117301/ [Concomitant]
  3. CODINE LINCTUS [Concomitant]
  4. DIAZEPAM [Concomitant]
  5. IRINOTECAN [Concomitant]
  6. LANSOPRAZOLE [Concomitant]
  7. LOPERAMIDE [Concomitant]
  8. PARACETAMOL [Concomitant]
  9. RECTOGESIC                         /00003201/ [Concomitant]

REACTIONS (3)
  - Malaise [Unknown]
  - Hypocalcaemia [Recovering/Resolving]
  - Hypophosphataemia [Recovering/Resolving]
